FAERS Safety Report 23204466 (Version 1)
Quarter: 2023Q4

REPORT INFORMATION
  Report Type: Spontaneous
  Country: KR (occurrence: KR)
  Receive Date: 20231120
  Receipt Date: 20231120
  Transmission Date: 20240109
  Serious: Yes (Other)
  Sender: FDA-Public Use
  Company Number: KR-009507513-2311KOR006233

PATIENT
  Age: 65 Year
  Sex: Female

DRUGS (3)
  1. PEMBROLIZUMAB [Suspect]
     Active Substance: PEMBROLIZUMAB
     Indication: Oesophageal cancer metastatic
     Dosage: UNK
     Dates: start: 20220802
  2. FLUOROURACIL [Suspect]
     Active Substance: FLUOROURACIL
     Indication: Oesophageal cancer metastatic
     Dosage: UNK
     Dates: start: 20220802, end: 202308
  3. PLATINUM [Suspect]
     Active Substance: PLATINUM
     Indication: Oesophageal cancer metastatic
     Dosage: UNK
     Dates: start: 20220802

REACTIONS (7)
  - Oesophageal stenosis [Unknown]
  - Palmar-plantar erythrodysaesthesia syndrome [Unknown]
  - Dysphagia [Unknown]
  - Vomiting [Unknown]
  - Medical device site reaction [Unknown]
  - Device dislocation [Unknown]
  - Device dislocation [Unknown]

NARRATIVE: CASE EVENT DATE: 20220801
